FAERS Safety Report 25922841 (Version 4)
Quarter: 2025Q4

REPORT INFORMATION
  Report Type: Report from Study
  Country: US (occurrence: US)
  Receive Date: 20251015
  Receipt Date: 20251104
  Transmission Date: 20260117
  Serious: Yes (Hospitalization, Other)
  Sender: IPSEN BIOPHARMACEUTICALS, INC.
  Company Number: US-IPSEN Group, Research and Development-2025-24868

PATIENT
  Age: 76 Year
  Sex: Male
  Weight: 65 kg

DRUGS (27)
  1. ONIVYDE [Suspect]
     Active Substance: IRINOTECAN HYDROCHLORIDE
     Indication: Oesophageal adenocarcinoma
     Dosage: FREQUENCY-DAYS 1 + 15 OF 28 DAY CYCLE?ROUTE- IV DRIP
     Route: 041
  2. NIVOLUMAB [Suspect]
     Active Substance: NIVOLUMAB
     Indication: Oesophageal adenocarcinoma
     Dosage: FREQUENCY-DAYS 1 + 15 OF 28 DAY CYCLE?ROUTE- IV DRIP
     Route: 041
  3. OXALIPLATIN [Suspect]
     Active Substance: OXALIPLATIN
     Indication: Oesophageal adenocarcinoma
     Dosage: FREQUENCY-DAYS 1 + 15 OF 28 DAY CYCLE?ROUTE- IV DRIP
     Route: 041
  4. FLUOROURACIL [Suspect]
     Active Substance: FLUOROURACIL
     Indication: Oesophageal adenocarcinoma
     Dosage: FREQUENCY-DAYS 1 + 15 OF 28 DAY CYCLE?ROUTE- IV DRIP
     Route: 041
     Dates: start: 20250826, end: 20250925
  5. ZOSYN [Concomitant]
     Active Substance: PIPERACILLIN SODIUM\TAZOBACTAM SODIUM
     Indication: Product used for unknown indication
  6. VANCOMYCIN [Concomitant]
     Active Substance: VANCOMYCIN
     Indication: Product used for unknown indication
  7. VANCOMYCIN [Concomitant]
     Active Substance: VANCOMYCIN
  8. VANCOMYCIN [Concomitant]
     Active Substance: VANCOMYCIN
  9. ZOFRAN [Concomitant]
     Active Substance: ONDANSETRON HYDROCHLORIDE
     Indication: Product used for unknown indication
  10. COMPAZINE [Concomitant]
     Active Substance: PROCHLORPERAZINE MALEATE
     Indication: Product used for unknown indication
     Dosage: 5-10 MG
  11. ZYPREXA [Concomitant]
     Active Substance: OLANZAPINE
     Indication: Product used for unknown indication
     Dosage: 5-10 MG
     Dates: start: 20250923
  12. FULPHILA [Concomitant]
     Active Substance: PEGFILGRASTIM-JMDB
  13. ACETAMINOPHEN [Concomitant]
     Active Substance: ACETAMINOPHEN
     Dosage: 2-3 TABS EVERY 6 HOURS
     Route: 048
     Dates: start: 20250918
  14. APIXABAN [Concomitant]
     Active Substance: APIXABAN
     Indication: Pulmonary embolism
     Route: 048
     Dates: start: 20250918, end: 20250930
  15. ATORVASTATIN CALCIUM [Concomitant]
     Active Substance: ATORVASTATIN CALCIUM
     Dates: start: 20250930
  16. OXYCODONE HYDROCHLORIDE [Concomitant]
     Active Substance: OXYCODONE HYDROCHLORIDE
  17. PROTONIX [Concomitant]
     Active Substance: PANTOPRAZOLE SODIUM
     Route: 048
     Dates: start: 20250918
  18. FILGRASTIM [Concomitant]
     Active Substance: FILGRASTIM
  19. HYDROCHLOROTHIAZIDE [Concomitant]
     Active Substance: HYDROCHLOROTHIAZIDE
     Indication: Hypertension
     Route: 048
     Dates: start: 20200630
  20. COZAAR [Concomitant]
     Active Substance: LOSARTAN POTASSIUM
     Indication: Hypertension
     Route: 048
  21. REVATIO [Concomitant]
     Active Substance: SILDENAFIL CITRATE
     Dosage: 2-4 TAB PRN
     Route: 048
  22. LIPITOR [Concomitant]
     Active Substance: ATORVASTATIN CALCIUM
     Indication: Hyperlipidaemia
     Route: 048
     Dates: start: 20250819
  23. LORATADINE [Concomitant]
     Active Substance: LORATADINE
     Route: 048
     Dates: start: 20250903
  24. ELIQUIS [Concomitant]
     Active Substance: APIXABAN
     Dosage: 10 MG TWICE DAILY FOR 7 DAYS FOLLOWED BY 5 MG TWICE DAILY
     Route: 048
  25. ELIQUIS [Concomitant]
     Active Substance: APIXABAN
     Dosage: 10 MG TWICE DAILY FOR 7 DAYS FOLLOWED BY 5 MG TWICE DAILY
     Route: 048
  26. PANTOPRAZOLE SODIUM [Concomitant]
     Active Substance: PANTOPRAZOLE SODIUM
     Indication: Gastrooesophageal reflux disease
     Dosage: TWICE DAILY
     Route: 048
  27. OLANZAPINE [Concomitant]
     Active Substance: OLANZAPINE
     Dosage: 1 TAB BEFORE BEDTIME
     Route: 048

REACTIONS (21)
  - Diarrhoea [Recovering/Resolving]
  - Abdominal pain lower [Not Recovered/Not Resolved]
  - Nausea [Not Recovered/Not Resolved]
  - Vomiting [Not Recovered/Not Resolved]
  - Neutropenic colitis [Unknown]
  - Biliary obstruction [Unknown]
  - Peripheral swelling [Unknown]
  - Pyrexia [Unknown]
  - Chills [Unknown]
  - Tachycardia [Unknown]
  - Febrile neutropenia [Unknown]
  - Kidney infection [Unknown]
  - Sepsis [Unknown]
  - Condition aggravated [Unknown]
  - Deep vein thrombosis [Unknown]
  - Rash [Unknown]
  - Tachycardia [Unknown]
  - Tachypnoea [Unknown]
  - Dizziness [Unknown]
  - Asthenia [Unknown]
  - Gastrointestinal disorder [Unknown]

NARRATIVE: CASE EVENT DATE: 20250912
